FAERS Safety Report 10055285 (Version 44)
Quarter: 2022Q3

REPORT INFORMATION
  Report Type: Other
  Country: CA (occurrence: CA)
  Receive Date: 20140403
  Receipt Date: 20220711
  Transmission Date: 20221027
  Serious: Yes (Hospitalization, Other)
  Sender: FDA-Public Use
  Company Number: CA-ROCHE-1374270

PATIENT
  Age: 57 Year
  Sex: Female
  Weight: 126 kg

DRUGS (44)
  1. XOLAIR [Suspect]
     Active Substance: OMALIZUMAB
     Indication: Asthma
     Route: 058
     Dates: start: 20121205
  2. XOLAIR [Suspect]
     Active Substance: OMALIZUMAB
     Indication: Psoriasis
     Route: 058
     Dates: start: 20121219
  3. XOLAIR [Suspect]
     Active Substance: OMALIZUMAB
     Route: 058
     Dates: start: 20130605
  4. XOLAIR [Suspect]
     Active Substance: OMALIZUMAB
     Route: 058
     Dates: start: 20131023
  5. XOLAIR [Suspect]
     Active Substance: OMALIZUMAB
     Route: 058
     Dates: start: 20131120
  6. XOLAIR [Suspect]
     Active Substance: OMALIZUMAB
     Route: 058
     Dates: start: 20131204
  7. XOLAIR [Suspect]
     Active Substance: OMALIZUMAB
     Route: 058
     Dates: start: 201604
  8. XOLAIR [Suspect]
     Active Substance: OMALIZUMAB
     Route: 058
     Dates: start: 20160511
  9. XOLAIR [Suspect]
     Active Substance: OMALIZUMAB
     Route: 058
     Dates: start: 20160928
  10. XOLAIR [Suspect]
     Active Substance: OMALIZUMAB
     Route: 058
     Dates: start: 20161123
  11. XOLAIR [Suspect]
     Active Substance: OMALIZUMAB
     Route: 058
     Dates: start: 20161221
  12. XOLAIR [Suspect]
     Active Substance: OMALIZUMAB
     Route: 058
     Dates: start: 20170222
  13. XOLAIR [Suspect]
     Active Substance: OMALIZUMAB
     Route: 058
     Dates: start: 20170308
  14. XOLAIR [Suspect]
     Active Substance: OMALIZUMAB
     Route: 058
     Dates: start: 20170322
  15. XOLAIR [Suspect]
     Active Substance: OMALIZUMAB
     Route: 058
     Dates: start: 20171222
  16. XOLAIR [Suspect]
     Active Substance: OMALIZUMAB
     Route: 058
     Dates: start: 20180109
  17. XOLAIR [Suspect]
     Active Substance: OMALIZUMAB
     Route: 058
     Dates: start: 20180221
  18. XOLAIR [Suspect]
     Active Substance: OMALIZUMAB
     Route: 058
     Dates: start: 20180626
  19. XOLAIR [Suspect]
     Active Substance: OMALIZUMAB
     Route: 058
     Dates: start: 20180807
  20. XOLAIR [Suspect]
     Active Substance: OMALIZUMAB
     Route: 058
     Dates: start: 20180919
  21. XOLAIR [Suspect]
     Active Substance: OMALIZUMAB
     Route: 058
     Dates: start: 20181002
  22. XOLAIR [Suspect]
     Active Substance: OMALIZUMAB
     Route: 058
     Dates: start: 20190402
  23. XOLAIR [Suspect]
     Active Substance: OMALIZUMAB
     Route: 058
     Dates: start: 20190418
  24. XOLAIR [Suspect]
     Active Substance: OMALIZUMAB
     Route: 058
     Dates: start: 20190514
  25. XOLAIR [Suspect]
     Active Substance: OMALIZUMAB
     Route: 058
     Dates: start: 201905
  26. XOLAIR [Suspect]
     Active Substance: OMALIZUMAB
     Route: 058
     Dates: start: 20190903
  27. XOLAIR [Suspect]
     Active Substance: OMALIZUMAB
     Route: 058
     Dates: start: 20191219
  28. XOLAIR [Suspect]
     Active Substance: OMALIZUMAB
     Route: 058
     Dates: start: 20200502
  29. XOLAIR [Suspect]
     Active Substance: OMALIZUMAB
     Route: 058
  30. XOLAIR [Suspect]
     Active Substance: OMALIZUMAB
     Route: 058
     Dates: start: 20150130
  31. XOLAIR [Suspect]
     Active Substance: OMALIZUMAB
     Route: 058
     Dates: start: 20180719
  32. XOLAIR [Suspect]
     Active Substance: OMALIZUMAB
     Route: 058
     Dates: start: 20181127
  33. XOLAIR [Suspect]
     Active Substance: OMALIZUMAB
     Route: 058
  34. XOLAIR [Suspect]
     Active Substance: OMALIZUMAB
     Route: 058
  35. ASPIRIN [Suspect]
     Active Substance: ASPIRIN
     Indication: Psoriasis
     Route: 065
  36. SYMBICORT [Concomitant]
     Active Substance: BUDESONIDE\FORMOTEROL FUMARATE DIHYDRATE
  37. FLOVENT [Concomitant]
     Active Substance: FLUTICASONE PROPIONATE
  38. VENTOLIN [Concomitant]
     Active Substance: ALBUTEROL SULFATE
  39. CODEINE [Concomitant]
     Active Substance: CODEINE
  40. PREDNISONE [Concomitant]
     Active Substance: PREDNISONE
  41. SPIRIVA [Concomitant]
     Active Substance: TIOTROPIUM BROMIDE MONOHYDRATE
  42. FLUTICASONE FUROATE [Concomitant]
     Active Substance: FLUTICASONE FUROATE
  43. SINGULAIR [Concomitant]
     Active Substance: MONTELUKAST SODIUM
  44. AZITHROMYCIN [Concomitant]
     Active Substance: AZITHROMYCIN

REACTIONS (75)
  - Loss of consciousness [Recovered/Resolved]
  - Respiratory tract infection [Unknown]
  - Palpitations [Recovered/Resolved]
  - Cataract [Unknown]
  - Pneumonia [Recovering/Resolving]
  - Chest pain [Unknown]
  - Gastrointestinal bacterial infection [Unknown]
  - Hypertension [Recovered/Resolved]
  - Rib fracture [Unknown]
  - Wrist fracture [Unknown]
  - Cardiac disorder [Unknown]
  - Arrhythmia [Unknown]
  - Fatigue [Unknown]
  - Neurogenic shock [Unknown]
  - Vertigo [Unknown]
  - Atrial fibrillation [Recovered/Resolved]
  - Benign breast neoplasm [Unknown]
  - Diabetes mellitus [Unknown]
  - Eye disorder [Unknown]
  - Neck pain [Unknown]
  - Weight decreased [Unknown]
  - Abdominal pain [Unknown]
  - Inflammation [Unknown]
  - Fall [Unknown]
  - Pain [Unknown]
  - Rhinorrhoea [Unknown]
  - Pain in extremity [Unknown]
  - COVID-19 [Unknown]
  - Urinary tract infection [Unknown]
  - Respiratory tract congestion [Unknown]
  - Malaise [Unknown]
  - Ecchymosis [Unknown]
  - Visual impairment [Unknown]
  - Dyspnoea exertional [Unknown]
  - Dyspnoea [Unknown]
  - Nasal congestion [Unknown]
  - Drug hypersensitivity [Unknown]
  - Asthma [Recovered/Resolved]
  - Superficial injury of eye [Unknown]
  - Blood pressure decreased [Unknown]
  - Bacterial test positive [Unknown]
  - Nausea [Not Recovered/Not Resolved]
  - Myalgia [Unknown]
  - Frequent bowel movements [Unknown]
  - Balance disorder [Unknown]
  - Decreased appetite [Unknown]
  - Asthenia [Unknown]
  - Headache [Unknown]
  - Burning sensation [Unknown]
  - Eye discharge [Unknown]
  - Ageusia [Unknown]
  - Irritable bowel syndrome [Unknown]
  - Diarrhoea [Unknown]
  - Influenza [Unknown]
  - Breast mass [Unknown]
  - Weight increased [Unknown]
  - Road traffic accident [Unknown]
  - Vision blurred [Unknown]
  - Oropharyngeal pain [Unknown]
  - Heavy menstrual bleeding [Unknown]
  - Speech disorder [Recovered/Resolved]
  - Bronchitis [Unknown]
  - Sinusitis [Unknown]
  - Amnesia [Unknown]
  - Anosmia [Unknown]
  - Productive cough [Unknown]
  - Urine output increased [Unknown]
  - Gastrointestinal disorder [Unknown]
  - Sputum discoloured [Unknown]
  - Speech disorder [Recovered/Resolved]
  - Vaginal haemorrhage [Unknown]
  - Heart rate increased [Unknown]
  - Cough [Unknown]
  - Wrong technique in product usage process [Unknown]
  - Off label use [Unknown]

NARRATIVE: CASE EVENT DATE: 20121220
